FAERS Safety Report 20374153 (Version 1)
Quarter: 2022Q1

REPORT INFORMATION
  Report Type: Spontaneous
  Country: US (occurrence: None)
  Receive Date: 20220125
  Receipt Date: 20220125
  Transmission Date: 20220423
  Serious: Yes (Hospitalization)
  Sender: FDA-Public Use
  Company Number: None

PATIENT
  Sex: Female
  Weight: 94.3 kg

DRUGS (2)
  1. BEVACIZUMAB [Suspect]
     Active Substance: BEVACIZUMAB
  2. DOXIL [Concomitant]
     Active Substance: DOXORUBICIN HYDROCHLORIDE

REACTIONS (5)
  - Acute kidney injury [None]
  - Hydronephrosis [None]
  - Small intestinal obstruction [None]
  - Dysuria [None]
  - Pyelonephritis [None]

NARRATIVE: CASE EVENT DATE: 20211213
